FAERS Safety Report 25392721 (Version 1)
Quarter: 2025Q2

REPORT INFORMATION
  Report Type: Spontaneous
  Country: CN (occurrence: CN)
  Receive Date: 20250603
  Receipt Date: 20250603
  Transmission Date: 20250716
  Serious: Yes (Other)
  Sender: BEIGENE
  Company Number: CN-BEIGENE-BGN-2025-008441

PATIENT
  Age: 65 Year
  Weight: 42.5 kg

DRUGS (8)
  1. TISLELIZUMAB [Suspect]
     Active Substance: TISLELIZUMAB
     Indication: Squamous cell carcinoma of the tongue
  2. TISLELIZUMAB [Suspect]
     Active Substance: TISLELIZUMAB
     Route: 041
  3. TISLELIZUMAB [Suspect]
     Active Substance: TISLELIZUMAB
     Route: 041
  4. TISLELIZUMAB [Suspect]
     Active Substance: TISLELIZUMAB
  5. FLUOROURACIL [Concomitant]
     Active Substance: FLUOROURACIL
     Indication: Squamous cell carcinoma of the tongue
     Route: 041
  6. FLUOROURACIL [Concomitant]
     Active Substance: FLUOROURACIL
  7. CISPLATIN [Concomitant]
     Active Substance: CISPLATIN
     Indication: Squamous cell carcinoma of the tongue
     Route: 041
  8. CISPLATIN [Concomitant]
     Active Substance: CISPLATIN

REACTIONS (1)
  - Myelosuppression [Unknown]
